FAERS Safety Report 4380012-7 (Version None)
Quarter: 2004Q2

REPORT INFORMATION
  Report Type: 
  Country: None (occurrence: None)
  Receive Date: 20040614
  Receipt Date: 20040603
  Transmission Date: 20050107
  Serious: Yes (Disabling)
  Sender: FDA-Public Use
  Company Number: 04H-028-0261250-00

PATIENT
  Age: 56 Year
  Sex: Female

DRUGS (4)
  1. BUPIVACAINE/DEXTROSE INJECTION (MARCAINE SPINAL) (MARCAINE SPINAL INJE [Suspect]
     Indication: ANAESTHESIA
     Dosage: 7.5 MG, ONCE, INTRASPINAL
  2. ACETAMINOPHEN W/ CODEINE [Concomitant]
  3. OXYCODONE HCL [Concomitant]
  4. ARTHROTEC [Concomitant]

REACTIONS (5)
  - BACK PAIN [None]
  - MUSCULAR WEAKNESS [None]
  - PAIN IN EXTREMITY [None]
  - PARAESTHESIA [None]
  - SENSORY LOSS [None]
